FAERS Safety Report 5892533-6 (Version None)
Quarter: 2008Q3

REPORT INFORMATION
  Report Type: 
  Country: None (occurrence: None)
  Receive Date: 20080923
  Receipt Date: 20080923
  Transmission Date: 20090109
  Serious: No
  Sender: FDA-Public Use
  Company Number: None

PATIENT
  Age: 56 Year
  Sex: Male
  Weight: 100.91 kg

DRUGS (1)
  1. HEPARIN [Suspect]
     Dosage: 25000 UNITS OTHER IV
     Route: 042
     Dates: start: 20080609, end: 20080611

REACTIONS (1)
  - ACTIVATED PARTIAL THROMBOPLASTIN TIME PROLONGED [None]
